FAERS Safety Report 8760593 (Version 4)
Quarter: 2013Q1

REPORT INFORMATION
  Report Type: Spontaneous
  Country: US (occurrence: None)
  Receive Date: 20120821
  Receipt Date: 20121121
  Transmission Date: 20140127
  Serious: Yes (Other)
  Sender: FDA-Public Use
  Company Number: DKLU1083356

PATIENT
  Age: 45 Year
  Sex: Male

DRUGS (9)
  1. ONFI [Suspect]
     Indication: PRODUCT USED FOR UNKNOWN INDICATION
     Dosage: 10 MG MILLIGRAM(S), AM, TABLET, ORAL
     Route: 048
     Dates: start: 201206
  2. ONFI [Suspect]
     Indication: TEMPORAL LOBE EPILEPSY
     Dosage: 10 MG MILLIGRAM(S), AM, TABLET, ORAL
     Route: 048
     Dates: start: 201206
  3. OXYCODONE(OXYCODONE) [Suspect]
     Indication: TEMPORAL LOBE EPILEPSY
     Dosage: 5 MG MILLIGRAM(S), TABLET, AFTERNOON, ORAL
  4. KLONOPIN(CLONAZEPAM) (TABLET) [Concomitant]
     Indication: CONVULSION
  5. BANZEL (RUFINAMIDE) [Concomitant]
  6. FELBATOL(FELBAMATE) [Concomitant]
  7. TRILEPTAL(OXCARBAZEPINE) [Concomitant]
  8. VIMPAT(LACOSAMIDE) [Concomitant]
  9. POTIGA(RETIGABINE) [Concomitant]

REACTIONS (11)
  - Atonic seizures [None]
  - Sedation [None]
  - Fall [None]
  - Rib fracture [None]
  - Aura [None]
  - Joint injury [None]
  - Irritability [None]
  - Aggression [None]
  - Constipation [None]
  - Abdominal distension [None]
  - Joint swelling [None]
